FAERS Safety Report 11792150 (Version 1)
Quarter: 2015Q4

REPORT INFORMATION
  Report Type: Spontaneous
  Country: IT (occurrence: IT)
  Receive Date: 20151201
  Receipt Date: 20151201
  Transmission Date: 20160305
  Serious: Yes (Death)
  Sender: FDA-Public Use
  Company Number: IT-GILEAD-2015-0183856

PATIENT
  Age: 68 Year
  Sex: Male
  Weight: 60 kg

DRUGS (4)
  1. LASIX [Suspect]
     Active Substance: FUROSEMIDE
     Indication: ASCITES
     Dosage: 1 DF, UNK
     Route: 048
  2. SOVALDI [Suspect]
     Active Substance: SOFOSBUVIR
     Indication: HEPATIC CIRRHOSIS
     Dosage: 1 DF, QD
     Route: 048
     Dates: start: 20150401, end: 20150613
  3. OLYSIO [Suspect]
     Active Substance: SIMEPREVIR
     Indication: HEPATIC CIRRHOSIS
     Dosage: 1 DF, QD
     Route: 048
     Dates: start: 20150401, end: 20150613
  4. NORMIX [Suspect]
     Active Substance: RIFAXIMIN
     Indication: ENCEPHALOPATHY
     Dosage: 4 DF, UNK
     Route: 050

REACTIONS (3)
  - Blood bilirubin increased [Fatal]
  - Jaundice [Fatal]
  - Microlithiasis [Fatal]

NARRATIVE: CASE EVENT DATE: 20150610
